FAERS Safety Report 21550028 (Version 1)
Quarter: 2022Q4

REPORT INFORMATION
  Report Type: Spontaneous
  Country: US (occurrence: US)
  Receive Date: 20221103
  Receipt Date: 20221103
  Transmission Date: 20230113
  Serious: Yes (Other)
  Sender: FDA-Public Use
  Company Number: US-MYLANLABS-2022M1118739

PATIENT
  Age: 3 Decade
  Sex: Female

DRUGS (10)
  1. DESVENLAFAXINE SUCCINATE [Suspect]
     Active Substance: DESVENLAFAXINE SUCCINATE
     Indication: Major depression
     Dosage: UNK
     Route: 065
  2. ESCITALOPRAM [Suspect]
     Active Substance: ESCITALOPRAM OXALATE
     Indication: Major depression
     Dosage: UNK
     Route: 065
  3. NORTRIPTYLINE [Suspect]
     Active Substance: NORTRIPTYLINE
     Indication: Major depression
     Dosage: UNK
     Route: 065
  4. ESKETAMINE [Concomitant]
     Active Substance: ESKETAMINE
     Indication: Major depression
     Dosage: 56 MILLIGRAM; INDUCTION
     Route: 045
  5. ESKETAMINE [Concomitant]
     Active Substance: ESKETAMINE
     Dosage: 84 MILLIGRAM
     Route: 045
  6. BUPROPION [Concomitant]
     Active Substance: BUPROPION
     Indication: Major depression
     Dosage: 150 MILLIGRAM
     Route: 065
  7. ARIPIPRAZOLE [Concomitant]
     Active Substance: ARIPIPRAZOLE
     Indication: Major depression
     Dosage: 10 MILLIGRAM
     Route: 065
  8. TRAZODONE [Concomitant]
     Active Substance: TRAZODONE HYDROCHLORIDE
     Indication: Major depression
     Dosage: 100 MILLIGRAM
     Route: 065
  9. CLONAZEPAM [Concomitant]
     Active Substance: CLONAZEPAM
     Indication: Major depression
     Dosage: 0.5 MILLIGRAM
     Route: 065
  10. SERTRALINE [Concomitant]
     Active Substance: SERTRALINE HYDROCHLORIDE
     Indication: Major depression
     Dosage: 50 MILLIGRAM
     Route: 065

REACTIONS (1)
  - Drug ineffective [Unknown]
